FAERS Safety Report 9467131 (Version 1)
Quarter: 2013Q3

REPORT INFORMATION
  Report Type: Report from Study
  Country: US (occurrence: US)
  Receive Date: 20130820
  Receipt Date: 20130820
  Transmission Date: 20140515
  Serious: Yes (Hospitalization, Other)
  Sender: FDA-Public Use
  Company Number: US-B.I. PHARMACEUTICALS,INC./RIDGEFIELD-2013-BI-25597GD

PATIENT
  Age: 10 Year
  Sex: Male

DRUGS (4)
  1. CLONIDINE [Suspect]
  2. METHYLPHENIDATE [Suspect]
  3. LITHIUM [Suspect]
  4. ESCITALOPRAM [Suspect]

REACTIONS (3)
  - Cardiac arrest [Unknown]
  - Ventricular tachycardia [Unknown]
  - Long QT syndrome [Unknown]
